FAERS Safety Report 4529526-7 (Version None)
Quarter: 2005Q1

REPORT INFORMATION
  Report Type: 
  Country: None (occurrence: None)
  Receive Date: 20041202
  Receipt Date: 20040930
  Transmission Date: 20050727
  Serious: No
  Sender: FDA-Public Use
  Company Number: 200420742BWH

PATIENT
  Age: 78 Year
  Sex: Male

DRUGS (2)
  1. LEVITRA [Suspect]
     Indication: ERECTILE DYSFUNCTION
     Dosage: 20 MG, PRN, ORAL; SEE IMAGE
     Route: 048
     Dates: start: 20040927
  2. LEVITRA [Suspect]
     Indication: ERECTILE DYSFUNCTION
     Dosage: 20 MG, PRN, ORAL; SEE IMAGE
     Route: 048
     Dates: start: 20040928

REACTIONS (2)
  - ERECTILE DYSFUNCTION [None]
  - NO ADVERSE DRUG EFFECT [None]
